FAERS Safety Report 4644824-4 (Version None)
Quarter: 2005Q2

REPORT INFORMATION
  Report Type: 
  Country: None (occurrence: None)
  Receive Date: 20050426
  Receipt Date: 20050317
  Transmission Date: 20051028
  Serious: Yes (Other)
  Sender: FDA-Public Use
  Company Number: FR-MERCK-0503FRA00084

PATIENT
  Age: 74 Year
  Sex: Male

DRUGS (11)
  1. ZETIA [Suspect]
     Indication: HYPERCHOLESTEROLAEMIA
     Route: 048
     Dates: start: 20050101, end: 20050301
  2. ATORVASTATIN CALCIUM [Concomitant]
     Indication: HYPERCHOLESTEROLAEMIA
     Route: 048
     Dates: start: 20050301
  3. ATORVASTATIN CALCIUM [Concomitant]
     Route: 048
     Dates: end: 20050301
  4. FUROSEMIDE [Concomitant]
     Route: 048
     Dates: end: 20050301
  5. FUROSEMIDE [Concomitant]
     Route: 048
     Dates: start: 20050301
  6. CLOPIDOGREL BISULFATE [Concomitant]
     Route: 048
     Dates: end: 20050301
  7. CLOPIDOGREL BISULFATE [Concomitant]
     Route: 048
     Dates: start: 20050301
  8. ASPIRIN LYSINE [Concomitant]
     Route: 048
     Dates: end: 20050301
  9. ASPIRIN LYSINE [Concomitant]
     Route: 048
     Dates: start: 20050301
  10. VALSARTAN [Concomitant]
     Indication: HYPERTENSION
     Route: 048
     Dates: start: 20050301
  11. VALSARTAN [Concomitant]
     Route: 048
     Dates: end: 20050301

REACTIONS (5)
  - ABDOMINAL DISTENSION [None]
  - DYSPNOEA [None]
  - FACE OEDEMA [None]
  - OEDEMA PERIPHERAL [None]
  - SENSE OF OPPRESSION [None]
